FAERS Safety Report 11334006 (Version 1)
Quarter: 2015Q3

REPORT INFORMATION
  Report Type: Spontaneous
  Country: US (occurrence: US)
  Receive Date: 20150803
  Receipt Date: 20150803
  Transmission Date: 20151125
  Serious: No
  Sender: FDA-Public Use
  Company Number: US-SA-2014SA133722

PATIENT
  Age: 76 Year
  Sex: Female

DRUGS (2)
  1. ZOLPIDEM [Suspect]
     Active Substance: ZOLPIDEM\ZOLPIDEM TARTRATE
     Dosage: REDUCING HER ZOLPIDEM 5MG QHS DOSE BY 10% EVERY FEW WEEKS BEGINNING IN JUNE 2014
     Route: 048
     Dates: start: 201406
  2. ZOLPIDEM [Suspect]
     Active Substance: ZOLPIDEM\ZOLPIDEM TARTRATE
     Dosage: 10MG USING ONE-HALF TABLET TO CREATE A 5MG DOSE AT BEDTIME
     Route: 048

REACTIONS (8)
  - Drug ineffective [Unknown]
  - Flushing [Not Recovered/Not Resolved]
  - Wrong technique in product usage process [Unknown]
  - Head injury [Not Recovered/Not Resolved]
  - Joint injury [Not Recovered/Not Resolved]
  - Emotional distress [Not Recovered/Not Resolved]
  - Night sweats [Not Recovered/Not Resolved]
  - Inappropriate schedule of drug administration [Unknown]

NARRATIVE: CASE EVENT DATE: 201406
